FAERS Safety Report 6309736-9 (Version None)
Quarter: 2009Q3

REPORT INFORMATION
  Report Type: 
  Country: None (occurrence: None)
  Receive Date: 20090814
  Receipt Date: 20090804
  Transmission Date: 20100115
  Serious: Yes (Hospitalization)
  Sender: FDA-Public Use
  Company Number: PHHY2009FR32446

PATIENT
  Sex: Female

DRUGS (4)
  1. TAREG [Suspect]
     Dosage: 160 MG DAILY
     Dates: end: 20090617
  2. DAFLON (DIOSMIN/HESPERIDIN) [Suspect]
     Dosage: UNK
     Dates: end: 20090617
  3. ACETAMINOPHEN AND TRAMADOL HCL [Suspect]
     Dosage: UNK
     Dates: end: 20090617
  4. AMLODIPINE [Suspect]
     Dosage: UNK
     Dates: end: 20090617

REACTIONS (5)
  - DERMATITIS BULLOUS [None]
  - ERYTHEMA [None]
  - PEMPHIGOID [None]
  - PHOTOSENSITIVITY REACTION [None]
  - PRURITUS [None]
